FAERS Safety Report 9326865 (Version 2)
Quarter: 2013Q3

REPORT INFORMATION
  Report Type: Spontaneous
  Country: US (occurrence: US)
  Receive Date: 20130604
  Receipt Date: 20130807
  Transmission Date: 20140515
  Serious: Yes (Other)
  Sender: FDA-Public Use
  Company Number: US-AMGEN-USASP2013037381

PATIENT
  Age: 59 Year
  Sex: Female
  Weight: 97.51 kg

DRUGS (1)
  1. ENBREL [Suspect]
     Indication: PSORIASIS
     Dosage: 50 MG, QWK
     Route: 058
     Dates: start: 20120913

REACTIONS (4)
  - Pharyngitis streptococcal [Recovered/Resolved]
  - Bronchitis [Recovered/Resolved]
  - Pharyngitis [Recovered/Resolved]
  - Sinusitis [Recovered/Resolved]
